FAERS Safety Report 21758968 (Version 1)
Quarter: 2022Q4

REPORT INFORMATION
  Report Type: Report from Study
  Country: US (occurrence: US)
  Receive Date: 20221221
  Receipt Date: 20221221
  Transmission Date: 20230112
  Serious: No
  Sender: FDA-Public Use
  Company Number: US-ABBVIE-4194472

PATIENT
  Sex: Male

DRUGS (12)
  1. SKYRIZI [Suspect]
     Active Substance: RISANKIZUMAB-RZAA
     Indication: Psoriatic arthropathy
     Route: 058
     Dates: start: 20221104
  2. ALLOPURINOL TAB 300MG [Concomitant]
     Indication: Product used for unknown indication
  3. SIMVASTATIN TAB 80MG [Concomitant]
     Indication: Product used for unknown indication
  4. ELIQUIS TAB 2.5MG [Concomitant]
     Indication: Product used for unknown indication
  5. DULOXETINE H CPE 60MG [Concomitant]
     Indication: Product used for unknown indication
  6. ALBUTEROL SU TAB 2MG [Concomitant]
     Indication: Product used for unknown indication
  7. METOPROLOL S TB2 200MG [Concomitant]
     Indication: Product used for unknown indication
  8. AMLODIPINE B CAP 5-10MG [Concomitant]
     Indication: Product used for unknown indication
  9. TRAZODONE HC TAB 150MG [Concomitant]
     Indication: Product used for unknown indication
  10. METHOTREXATE [Concomitant]
     Active Substance: METHOTREXATE
     Indication: Product used for unknown indication
  11. ASPIRIN TBE 325MG [Concomitant]
     Indication: Product used for unknown indication
  12. BD PEN MINI MIS [Concomitant]
     Indication: Product used for unknown indication

REACTIONS (2)
  - Depression [Unknown]
  - Rheumatoid arthritis [Unknown]
